FAERS Safety Report 10006520 (Version 1)
Quarter: 2014Q1

REPORT INFORMATION
  Report Type: Report from Study
  Country: CA (occurrence: CA)
  Receive Date: 20140313
  Receipt Date: 20140313
  Transmission Date: 20141002
  Serious: Yes (Other)
  Sender: FDA-Public Use
  Company Number: CA-ABBVIE-14P-028-1209197-00

PATIENT
  Age: 41 Year
  Sex: Male

DRUGS (1)
  1. HUMIRA [Suspect]
     Indication: ANKYLOSING SPONDYLITIS
     Dosage: LATEST DOSE --2014
     Route: 058
     Dates: start: 20120511

REACTIONS (3)
  - Convulsion [Unknown]
  - Stress [Unknown]
  - Unevaluable event [Unknown]
